FAERS Safety Report 14375964 (Version 2)
Quarter: 2018Q2

REPORT INFORMATION
  Report Type: Spontaneous
  Country: US (occurrence: US)
  Receive Date: 20180111
  Receipt Date: 20180418
  Transmission Date: 20180711
  Serious: Yes (Death, Life-Threatening, Other)
  Sender: FDA-Public Use
  Company Number: US-KITE, A GILEAD COMPANY-2039933

PATIENT

DRUGS (1)
  1. YESCARTA [Suspect]
     Active Substance: AXICABTAGENE CILOLEUCEL
     Indication: DIFFUSE LARGE B-CELL LYMPHOMA
     Route: 042
     Dates: start: 20171211, end: 20171211

REACTIONS (4)
  - Cytokine release syndrome [Fatal]
  - Neurotoxicity [Fatal]
  - Histiocytosis haematophagic [Unknown]
  - Systemic candida [Unknown]
